FAERS Safety Report 12880853 (Version 1)
Quarter: 2016Q4

REPORT INFORMATION
  Report Type: Spontaneous
  Country: US (occurrence: US)
  Receive Date: 20161025
  Receipt Date: 20161025
  Transmission Date: 20170207
  Serious: Yes (Other)
  Sender: FDA-Public Use
  Company Number: None

PATIENT
  Age: 82 Year
  Sex: Female
  Weight: 50.8 kg

DRUGS (5)
  1. ALPHAGAN P [Suspect]
     Active Substance: BRIMONIDINE TARTRATE
     Indication: PRODUCT USED FOR UNKNOWN INDICATION
     Dosage: ALPHAGAN - LIQUID - EYES DROPS - TWICE DAILY
     Route: 047
     Dates: start: 20160523, end: 20160525
  2. SYNTHROID [Concomitant]
     Active Substance: LEVOTHYROXINE SODIUM
  3. AVASTIN [Concomitant]
     Active Substance: BEVACIZUMAB
  4. ALPHAGAN P [Concomitant]
     Active Substance: BRIMONIDINE TARTRATE
  5. PRESERVISION - I - CAPS [Concomitant]

REACTIONS (2)
  - Expired product administered [None]
  - Drug dispensing error [None]

NARRATIVE: CASE EVENT DATE: 20160523
